FAERS Safety Report 24988151 (Version 1)
Quarter: 2025Q1

REPORT INFORMATION
  Report Type: Report from Study
  Country: US (occurrence: US)
  Receive Date: 20250220
  Receipt Date: 20250220
  Transmission Date: 20250409
  Serious: Yes (Hospitalization, Other)
  Sender: ABBVIE
  Company Number: US-ABBVIE-6111547

PATIENT
  Age: 66 Year
  Sex: Female

DRUGS (1)
  1. SKYRIZI [Suspect]
     Active Substance: RISANKIZUMAB-RZAA
     Indication: Crohn^s disease
     Route: 042
     Dates: start: 20241111

REACTIONS (9)
  - Intestinal obstruction [Unknown]
  - Crohn^s disease [Unknown]
  - Weight decreased [Unknown]
  - Asthenia [Unknown]
  - Asthenia [Unknown]
  - Dizziness [Unknown]
  - Nausea [Unknown]
  - Abdominal pain [Unknown]
  - Serum ferritin decreased [Unknown]

NARRATIVE: CASE EVENT DATE: 20241201
